FAERS Safety Report 9295321 (Version 2)
Quarter: 2013Q2

REPORT INFORMATION
  Report Type: Spontaneous
  Country: FR (occurrence: FR)
  Receive Date: 20130517
  Receipt Date: 20130528
  Transmission Date: 20140414
  Serious: Yes (Hospitalization, Other)
  Sender: FDA-Public Use
  Company Number: FR-PFIZER INC-2013151424

PATIENT
  Age: 85 Year
  Sex: Male

DRUGS (3)
  1. CORDARONE [Suspect]
     Indication: ATRIAL FIBRILLATION
     Dosage: 200 MG, DAILY
     Route: 048
     Dates: end: 20120220
  2. COVERSYL [Concomitant]
     Dosage: UNK
  3. PREVISCAN [Concomitant]
     Dosage: UNK

REACTIONS (5)
  - Lung disorder [Unknown]
  - Lung infection [Unknown]
  - Cardiac failure [Unknown]
  - Prerenal failure [Unknown]
  - International normalised ratio increased [Recovered/Resolved]
